FAERS Safety Report 20255028 (Version 1)
Quarter: 2021Q4

REPORT INFORMATION
  Report Type: Spontaneous
  Country: CN (occurrence: CN)
  Receive Date: 20211230
  Receipt Date: 20211230
  Transmission Date: 20220303
  Serious: Yes (Other)
  Sender: FDA-Public Use
  Company Number: CN-PFIZER INC-202101815277

PATIENT
  Age: 63 Year
  Sex: Male
  Weight: 60 kg

DRUGS (10)
  1. EPIRUBICIN [Suspect]
     Active Substance: EPIRUBICIN
     Indication: Mantle cell lymphoma
     Dosage: 110.000 MG, 1X/DAY D2
     Route: 041
     Dates: start: 20211023, end: 20211023
  2. RITUXIMAB [Suspect]
     Active Substance: RITUXIMAB
     Indication: Mantle cell lymphoma
     Dosage: 100.000 MG, 1X/DAY D1
     Route: 041
     Dates: start: 20211022, end: 20211022
  3. RITUXIMAB [Suspect]
     Active Substance: RITUXIMAB
     Dosage: 500.000 MG, 1X/DAY D1
     Route: 041
     Dates: start: 20211022, end: 20211022
  4. CYCLOPHOSPHAMIDE [Suspect]
     Active Substance: CYCLOPHOSPHAMIDE
     Indication: Mantle cell lymphoma
     Dosage: 1.200 G, 1X/DAY D2
     Route: 041
     Dates: start: 20211023, end: 20211023
  5. VINDESINE SULFATE [Suspect]
     Active Substance: VINDESINE SULFATE
     Indication: Mantle cell lymphoma
     Dosage: 4.000 MG, 1X/DAY D2
     Route: 042
     Dates: start: 20211023, end: 20211023
  6. SODIUM CHLORIDE [Concomitant]
     Active Substance: SODIUM CHLORIDE
     Indication: Vehicle solution use
     Dosage: 450.000 ML, 1X/DAY
     Route: 041
     Dates: start: 20211022, end: 20211022
  7. SODIUM CHLORIDE [Concomitant]
     Active Substance: SODIUM CHLORIDE
     Indication: Vehicle solution use
     Dosage: 90.000 ML, 1X/DAY
     Route: 041
     Dates: start: 20211022, end: 20211022
  8. SODIUM CHLORIDE [Concomitant]
     Active Substance: SODIUM CHLORIDE
     Dosage: 100 ML, 1X/DAY
     Route: 041
     Dates: start: 20211023, end: 20211023
  9. SODIUM CHLORIDE [Concomitant]
     Active Substance: SODIUM CHLORIDE
     Dosage: 100 ML, 1X/DAY
     Route: 041
     Dates: start: 20211023, end: 20211023
  10. SODIUM CHLORIDE [Concomitant]
     Active Substance: SODIUM CHLORIDE
     Dosage: 40.000 ML, 1X/DAY
     Route: 042
     Dates: start: 20211023, end: 20211023

REACTIONS (3)
  - Full blood count abnormal [Recovering/Resolving]
  - White blood cell count decreased [Recovering/Resolving]
  - Neutrophil count decreased [Recovering/Resolving]

NARRATIVE: CASE EVENT DATE: 20211101
